FAERS Safety Report 5947203-2 (Version None)
Quarter: 2008Q4

REPORT INFORMATION
  Report Type: 
  Country: None (occurrence: None)
  Receive Date: 20081110
  Receipt Date: 20081110
  Transmission Date: 20090506
  Serious: No
  Sender: FDA-Public Use
  Company Number: US-B.I. PHARMACEUTICALS,INC./RIDGEFIELD-2008-BP-06984BP

PATIENT
  Age: 72 Year
  Sex: Female

DRUGS (3)
  1. ZANTAC 150 [Suspect]
     Indication: GASTROOESOPHAGEAL REFLUX DISEASE
     Dosage: 300MG
     Dates: start: 20080413, end: 20080502
  2. LIPITOR [Concomitant]
     Dosage: 10MG
  3. ATENOLOL [Concomitant]

REACTIONS (2)
  - HYPERAESTHESIA [None]
  - RASH [None]
